FAERS Safety Report 12527719 (Version 2)
Quarter: 2016Q3

REPORT INFORMATION
  Report Type: Report from Study
  Country: ES (occurrence: ES)
  Receive Date: 20160705
  Receipt Date: 20160714
  Transmission Date: 20161109
  Serious: Yes (Death, Other)
  Sender: FDA-Public Use
  Company Number: ES-AMGEN-ESPSP2016086690

PATIENT
  Age: 58 Year
  Sex: Male

DRUGS (1)
  1. CARFILZOMIB [Suspect]
     Active Substance: CARFILZOMIB
     Indication: PLASMA CELL MYELOMA
     Dosage: 60 MG 1 VIAL
     Route: 042
     Dates: start: 20160510

REACTIONS (1)
  - Encephalopathy [Fatal]

NARRATIVE: CASE EVENT DATE: 20160607
